FAERS Safety Report 7082937-0 (Version None)
Quarter: 2010Q4

REPORT INFORMATION
  Report Type: 
  Country: None (occurrence: None)
  Receive Date: 20101104
  Receipt Date: 20101101
  Transmission Date: 20110411
  Serious: Yes (Death, Hospitalization)
  Sender: FDA-Public Use
  Company Number: PHHY2010NZ68019

PATIENT
  Sex: Male

DRUGS (11)
  1. CLOZARIL [Suspect]
     Indication: SCHIZOPHRENIA
     Dosage: 25 MG NOCTE
     Dates: start: 20070926
  2. MADOPAR [Concomitant]
     Dosage: 25 MG, 2 TABLETS QD
  3. MADOPAR [Concomitant]
     Dosage: 100 MG 1 TABLET X5 PER DAY
  4. LISURIDE [Concomitant]
     Dosage: 1 TABLET QD
  5. LESOL [Concomitant]
     Dosage: 2 TABS NOCTE
  6. MIDODRINE HYDROCHLORIDE [Concomitant]
     Dosage: 5 MG
  7. NEO-CYTAMEN [Concomitant]
     Dosage: 1000 UG
  8. MELATONIN [Concomitant]
     Dosage: 1 MG NOCTE
  9. TRIMETHOPRIM [Concomitant]
     Dosage: 0.5 MG QD
  10. PARACETAMOL [Concomitant]
     Dosage: 1GM UP TO QID
  11. CLONAZEPAM [Concomitant]
     Dosage: 0.3-0.5G UP TO BD

REACTIONS (7)
  - HYPOTENSION [None]
  - MALAISE [None]
  - PNEUMONIA [None]
  - PRODUCTIVE COUGH [None]
  - PYREXIA [None]
  - RESPIRATORY ARREST [None]
  - SOMNOLENCE [None]
